FAERS Safety Report 6744834-7 (Version None)
Quarter: 2010Q2

REPORT INFORMATION
  Report Type: 
  Country: None (occurrence: None)
  Receive Date: 20100527
  Receipt Date: 20100419
  Transmission Date: 20101027
  Serious: No
  Sender: FDA-Public Use
  Company Number: US-BRISTOL-MYERS SQUIBB COMPANY-15023286

PATIENT
  Sex: Male

DRUGS (4)
  1. ONGLYZA [Suspect]
     Indication: TYPE 2 DIABETES MELLITUS
  2. METFORMIN HCL [Suspect]
     Indication: TYPE 2 DIABETES MELLITUS
  3. AVANDIA [Suspect]
     Indication: TYPE 2 DIABETES MELLITUS
  4. SULFONYLUREA [Suspect]
     Indication: TYPE 2 DIABETES MELLITUS

REACTIONS (1)
  - DRUG INEFFECTIVE [None]
